FAERS Safety Report 13876844 (Version 12)
Quarter: 2020Q1

REPORT INFORMATION
  Report Type: Report from Study
  Country: CA (occurrence: CA)
  Receive Date: 20170817
  Receipt Date: 20200323
  Transmission Date: 20200409
  Serious: Yes (Other)
  Sender: FDA-Public Use
  Company Number: CA-BRISTOL-MYERS SQUIBB COMPANY-BMS-2017-009349

PATIENT
  Age: 64 Year
  Sex: Female

DRUGS (8)
  1. FOLIC ACID. [Concomitant]
     Active Substance: FOLIC ACID
     Indication: PRODUCT USED FOR UNKNOWN INDICATION
     Route: 065
  2. IRBESARTAN. [Concomitant]
     Active Substance: IRBESARTAN
     Indication: PRODUCT USED FOR UNKNOWN INDICATION
     Route: 065
  3. ABATACEPT [Suspect]
     Active Substance: ABATACEPT
     Indication: RHEUMATOID ARTHRITIS
     Dosage: 750 MILLIGRAM, Q4WK
     Route: 042
     Dates: start: 20140807
  4. ESOMEPRAZOLE. [Concomitant]
     Active Substance: ESOMEPRAZOLE MAGNESIUM
     Indication: PRODUCT USED FOR UNKNOWN INDICATION
     Route: 065
  5. MTX [METHOTREXATE] [Concomitant]
     Active Substance: METHOTREXATE SODIUM
     Indication: PRODUCT USED FOR UNKNOWN INDICATION
     Route: 065
  6. ABATACEPT [Suspect]
     Active Substance: ABATACEPT
     Indication: PRODUCT USED FOR UNKNOWN INDICATION
     Dosage: UNK
     Route: 065
  7. SYNTHROID [Concomitant]
     Active Substance: LEVOTHYROXINE SODIUM
     Indication: PRODUCT USED FOR UNKNOWN INDICATION
     Route: 065
  8. APO NAPROXEN [Concomitant]
     Active Substance: NAPROXEN
     Indication: PRODUCT USED FOR UNKNOWN INDICATION
     Route: 065

REACTIONS (23)
  - Influenza [Unknown]
  - Pain [Unknown]
  - Cataract operation [Recovered/Resolved]
  - Joint injury [Recovered/Resolved]
  - Nasal congestion [Recovering/Resolving]
  - Rhinorrhoea [Unknown]
  - Diabetes mellitus [Unknown]
  - Hypotension [Unknown]
  - Inflammation [Unknown]
  - Blood pressure increased [Not Recovered/Not Resolved]
  - Bronchitis [Recovering/Resolving]
  - Cough [Recovering/Resolving]
  - Sciatic nerve neuropathy [Recovering/Resolving]
  - Dysphonia [Unknown]
  - Burns second degree [Recovering/Resolving]
  - Fall [Recovered/Resolved]
  - Insomnia [Recovering/Resolving]
  - Rib fracture [Recovering/Resolving]
  - Nasopharyngitis [Recovered/Resolved]
  - Fatigue [Recovering/Resolving]
  - Pneumonia [Unknown]
  - Throat irritation [Not Recovered/Not Resolved]
  - Stress [Unknown]

NARRATIVE: CASE EVENT DATE: 20170419
